FAERS Safety Report 18527400 (Version 1)
Quarter: 2020Q4

REPORT INFORMATION
  Report Type: Spontaneous
  Country: US (occurrence: US)
  Receive Date: 20201120
  Receipt Date: 20201120
  Transmission Date: 20210114
  Serious: No
  Sender: FDA-Public Use
  Company Number: US-MYLANLABS-2020M1093877

PATIENT
  Sex: Female

DRUGS (1)
  1. VALSARTAN TABLETS, USP [Suspect]
     Active Substance: VALSARTAN
     Indication: HYPERTENSION
     Dosage: ONE IN THE MORNING AND TWO IN THE EVENING, SWITCHED TO DISCONTINUE THE ONE IN THE MORNING
     Route: 048

REACTIONS (6)
  - Morning sickness [Unknown]
  - Nausea [Unknown]
  - Diarrhoea [Unknown]
  - Terminal insomnia [Unknown]
  - Feeling abnormal [Unknown]
  - Abdominal discomfort [Unknown]

NARRATIVE: CASE EVENT DATE: 2020
